FAERS Safety Report 11401991 (Version 1)
Quarter: 2015Q3

REPORT INFORMATION
  Report Type: Spontaneous
  Country: US (occurrence: None)
  Receive Date: 20150820
  Receipt Date: 20150820
  Transmission Date: 20151125
  Serious: No
  Sender: FDA-Public Use
  Company Number: None

PATIENT
  Age: 68 Year
  Sex: Female

DRUGS (5)
  1. AMOXICILLIN 500MG [Suspect]
     Active Substance: AMOXICILLIN
     Indication: DENTAL OPERATION
     Dosage: 1, TID, ORAL
     Route: 048
     Dates: start: 20150804
  2. LEVOTHYROXINE. [Concomitant]
     Active Substance: LEVOTHYROXINE
  3. OXYCODONE [Concomitant]
     Active Substance: OXYCODONE
  4. AMOXICILLIN 500MG [Suspect]
     Active Substance: AMOXICILLIN
     Indication: TOOTH INFECTION
     Dosage: 1, TID, ORAL
     Route: 048
     Dates: start: 20150804
  5. TRIAZOLAM. [Concomitant]
     Active Substance: TRIAZOLAM

REACTIONS (3)
  - Erythema [None]
  - Pruritus generalised [None]
  - Swelling [None]

NARRATIVE: CASE EVENT DATE: 20150818
